FAERS Safety Report 21657101 (Version 1)
Quarter: 2022Q4

REPORT INFORMATION
  Report Type: Report from Study
  Country: US (occurrence: US)
  Receive Date: 20221129
  Receipt Date: 20221129
  Transmission Date: 20230112
  Serious: No
  Sender: FDA-Public Use
  Company Number: US-ABBVIE-4166873

PATIENT
  Sex: Female

DRUGS (2)
  1. HUMIRA [Suspect]
     Active Substance: ADALIMUMAB
     Indication: Psoriatic arthropathy
     Dosage: FORM STRENGTH 40 MILLIGRAM?THE EVENT ONSET DATE FOR ADVERSE EVENT PSORIATIC ARTHRITIS FLARE WAS S...
     Route: 058
  2. PFIZER-BIONTECH COVID-19 VACCINE [Concomitant]
     Active Substance: TOZINAMERAN
     Indication: COVID-19 immunisation
     Dosage: ONE IN ONCE
     Route: 030

REACTIONS (4)
  - Psoriatic arthropathy [Not Recovered/Not Resolved]
  - Pain [Not Recovered/Not Resolved]
  - Mental impairment [Not Recovered/Not Resolved]
  - Fatigue [Not Recovered/Not Resolved]
